FAERS Safety Report 15399837 (Version 5)
Quarter: 2019Q3

REPORT INFORMATION
  Report Type: Spontaneous
  Country: FI (occurrence: FI)
  Receive Date: 20180918
  Receipt Date: 20190826
  Transmission Date: 20191004
  Serious: Yes (Hospitalization, Other)
  Sender: FDA-Public Use
  Company Number: FI-ABBVIE-09P-055-0591193-00

PATIENT
  Age: 9 Year
  Sex: Male
  Weight: 36.4 kg

DRUGS (17)
  1. FOLVITE [Concomitant]
     Active Substance: FOLIC ACID
     Indication: PROPHYLAXIS
  2. BIMATOPROST. [Concomitant]
     Active Substance: BIMATOPROST
     Indication: EYE DISORDER
  3. CALCICHEW D3 FORTE [Concomitant]
     Active Substance: CALCIUM\CHOLECALCIFEROL
     Indication: PRODUCT USED FOR UNKNOWN INDICATION
     Dosage: FOR YEARS
     Route: 048
  4. PREDNISOLONE. [Concomitant]
     Active Substance: PREDNISOLONE
     Indication: EYE DISORDER
     Dates: start: 20090430
  5. INFLIXIMAB [Concomitant]
     Active Substance: INFLIXIMAB
     Indication: PRODUCT USED FOR UNKNOWN INDICATION
     Dates: start: 2010, end: 2013
  6. MYCOPHENOLIC ACID. [Concomitant]
     Active Substance: MYCOPHENOLIC ACID
     Indication: PRODUCT USED FOR UNKNOWN INDICATION
  7. PREDNISOLONE. [Concomitant]
     Active Substance: PREDNISOLONE
  8. OFTAN DEXA [Concomitant]
     Indication: PRODUCT USED FOR UNKNOWN INDICATION
     Route: 047
     Dates: start: 2010
  9. FOLIC ACID. [Concomitant]
     Active Substance: FOLIC ACID
     Indication: PRODUCT USED FOR UNKNOWN INDICATION
  10. GOLIMUMAB [Suspect]
     Active Substance: GOLIMUMAB
     Indication: PRODUCT USED FOR UNKNOWN INDICATION
     Route: 065
  11. MULTI-TABS [Concomitant]
     Indication: PRODUCT USED FOR UNKNOWN INDICATION
     Route: 048
  12. CICLOSPORINE [Concomitant]
     Active Substance: CYCLOSPORINE
     Indication: PRODUCT USED FOR UNKNOWN INDICATION
  13. HUMIRA [Suspect]
     Active Substance: ADALIMUMAB
     Indication: JUVENILE IDIOPATHIC ARTHRITIS
     Route: 048
     Dates: start: 20090612, end: 20090625
  14. FOLVITE [Concomitant]
     Active Substance: FOLIC ACID
     Indication: ADVERSE DRUG REACTION
     Dosage: 3 MG ONE TIME A WEEK
     Route: 048
     Dates: start: 2002
  15. INFLIXIMAB [Concomitant]
     Active Substance: INFLIXIMAB
  16. HUMIRA [Suspect]
     Active Substance: ADALIMUMAB
     Indication: IRITIS
  17. METHOTREXATE. [Suspect]
     Active Substance: METHOTREXATE
     Indication: JUVENILE IDIOPATHIC ARTHRITIS
     Route: 058
     Dates: start: 2002, end: 2014

REACTIONS (19)
  - Glaucoma [Unknown]
  - Anaphylactic reaction [Recovered/Resolved]
  - Iritis [Unknown]
  - Headache [Unknown]
  - Cataract [Unknown]
  - Intraocular pressure increased [Unknown]
  - Chest discomfort [Unknown]
  - Osteopenia [Unknown]
  - Pupillary deformity [Unknown]
  - Intraocular pressure test abnormal [Unknown]
  - Intraocular pressure increased [Unknown]
  - Diarrhoea [Unknown]
  - Nausea [Unknown]
  - Lacrimation increased [Unknown]
  - Arthropathy [Unknown]
  - Condition aggravated [Recovering/Resolving]
  - Post procedural complication [Unknown]
  - Papilloedema [Unknown]
  - Delayed puberty [Unknown]

NARRATIVE: CASE EVENT DATE: 20090612
